FAERS Safety Report 25755684 (Version 2)
Quarter: 2025Q4

REPORT INFORMATION
  Report Type: Spontaneous
  Country: US (occurrence: US)
  Receive Date: 20250903
  Receipt Date: 20251020
  Transmission Date: 20260118
  Serious: No
  Sender: NOVARTIS
  Company Number: US-002147023-NVSC2025US133201

PATIENT
  Sex: Female

DRUGS (1)
  1. COSENTYX [Suspect]
     Active Substance: SECUKINUMAB
     Indication: Product used for unknown indication
     Dosage: UNK (ROUTE: INFUSION)
     Route: 065

REACTIONS (4)
  - Depressed mood [Unknown]
  - Emotional distress [Unknown]
  - Insomnia [Unknown]
  - Headache [Unknown]
